FAERS Safety Report 20504499 (Version 1)
Quarter: 2022Q1

REPORT INFORMATION
  Report Type: Spontaneous
  Country: JP (occurrence: JP)
  Receive Date: 20220223
  Receipt Date: 20220223
  Transmission Date: 20220423
  Serious: Yes (Hospitalization, Other)
  Sender: FDA-Public Use
  Company Number: JP-RISINGPHARMA-JP-2022RISLIT00151

PATIENT

DRUGS (10)
  1. VERAPAMIL HYDROCHLORIDE [Suspect]
     Active Substance: VERAPAMIL HYDROCHLORIDE
     Indication: Tachycardia
     Route: 065
  2. BISOPROLOL [Suspect]
     Active Substance: BISOPROLOL
     Indication: Palpitations
     Route: 065
  3. REMIFENTANIL [Suspect]
     Active Substance: REMIFENTANIL
     Indication: General anaesthesia
     Dosage: 0.3 MICROGRAM/KG/MIN
     Route: 065
  4. REMIFENTANIL [Suspect]
     Active Substance: REMIFENTANIL
     Dosage: 0.3 UG/KG/MIN
     Route: 065
  5. LANDIOLOL [Suspect]
     Active Substance: LANDIOLOL
     Indication: Tachycardia
     Dosage: 7 UG/KG/MIN
     Route: 065
  6. PROPOFOL [Concomitant]
     Active Substance: PROPOFOL
     Indication: General anaesthesia
     Route: 065
  7. PROPOFOL [Concomitant]
     Active Substance: PROPOFOL
     Dosage: 2.2 UG/ML
     Route: 065
  8. OXYGEN [Concomitant]
     Active Substance: OXYGEN
     Indication: General anaesthesia
     Route: 065
  9. ROCURONIUM [Concomitant]
     Active Substance: ROCURONIUM BROMIDE
     Indication: General anaesthesia
     Route: 065
  10. PHENYLEPHRINE [Concomitant]
     Active Substance: PHENYLEPHRINE HYDROCHLORIDE
     Indication: Blood pressure decreased
     Route: 065

REACTIONS (2)
  - Trigemino-cardiac reflex [Recovered/Resolved]
  - Bradycardia [Recovered/Resolved]
